FAERS Safety Report 4323488-3 (Version None)
Quarter: 2004Q1

REPORT INFORMATION
  Report Type: 
  Country: None (occurrence: None)
  Receive Date: 20040325
  Receipt Date: 20040316
  Transmission Date: 20041129
  Serious: Yes (Hospitalization)
  Sender: FDA-Public Use
  Company Number: PHBS2004GB03829

PATIENT
  Age: 58 Year
  Sex: Male

DRUGS (11)
  1. DICLOFENAC SODIUM [Suspect]
     Dosage: 75 MG/DAY
  2. PREDNISOLONE [Concomitant]
     Dosage: 7.5 MG/DAY
  3. PREDNISOLONE [Concomitant]
     Dosage: 40 MG/DAY
  4. PREDNISOLONE [Concomitant]
     Dosage: 10 MG/DAY
  5. MINOCYCLINE HCL [Concomitant]
     Dosage: 100 MG/DAY
  6. BENZYLPENICILLIN [Concomitant]
     Route: 042
  7. CLOTRIMAZOLE [Concomitant]
  8. CLOBETASOL PROPIONATE [Concomitant]
  9. NEOMYCIN [Concomitant]
  10. TACROLIMUS [Concomitant]
  11. CYCLOSPORINE [Suspect]
     Indication: PYODERMA GANGRENOSUM
     Dosage: UP TO 2.5 MG/KG

REACTIONS (13)
  - ABSCESS [None]
  - CROHN'S DISEASE [None]
  - DIARRHOEA HAEMORRHAGIC [None]
  - INFLAMMATORY BOWEL DISEASE [None]
  - MOUTH ULCERATION [None]
  - MUCOSAL INFLAMMATION [None]
  - MUCOSAL ULCERATION [None]
  - OPEN WOUND [None]
  - PYODERMA GANGRENOSUM [None]
  - RASH [None]
  - SKIN ULCER [None]
  - WEIGHT DECREASED [None]
  - WOUND SECRETION [None]
